FAERS Safety Report 13668516 (Version 1)
Quarter: 2017Q2

REPORT INFORMATION
  Report Type: Spontaneous
  Country: US (occurrence: US)
  Receive Date: 20170619
  Receipt Date: 20170619
  Transmission Date: 20170830
  Serious: Yes (Other)
  Sender: FDA-Public Use
  Company Number: None

PATIENT
  Age: 62 Year
  Sex: Male

DRUGS (1)
  1. NEXAVAR [Suspect]
     Active Substance: SORAFENIB
     Indication: HEPATIC CANCER
     Dosage: 2 TABLETS TWICE A DAY BY MOUTH
     Route: 048
     Dates: start: 20170112, end: 20170619

REACTIONS (2)
  - Confusional state [None]
  - Pain [None]

NARRATIVE: CASE EVENT DATE: 20170619
